FAERS Safety Report 4869434-5 (Version None)
Quarter: 2005Q4

REPORT INFORMATION
  Report Type: 
  Country: None (occurrence: None)
  Receive Date: 20051230
  Receipt Date: 20051221
  Transmission Date: 20060501
  Serious: Yes (Disabling)
  Sender: FDA-Public Use
  Company Number: DO-MERCK-0512USA03487

PATIENT
  Sex: Male

DRUGS (1)
  1. VIOXX [Suspect]
     Route: 048
     Dates: start: 20000601, end: 20010101

REACTIONS (3)
  - ANHEDONIA [None]
  - MYOCARDIAL INFARCTION [None]
  - PAIN [None]
